FAERS Safety Report 6540354-3 (Version None)
Quarter: 2010Q1

REPORT INFORMATION
  Report Type: 
  Country: None (occurrence: None)
  Receive Date: 20100112
  Receipt Date: 20091215
  Transmission Date: 20100710
  Serious: Yes (Hospitalization)
  Sender: FDA-Public Use
  Company Number: 575123

PATIENT
  Age: 1 Day
  Weight: 0.4536 kg

DRUGS (1)
  1. ENDURE 420 CIDA-STAT 40Z [Suspect]
     Indication: SURGERY
     Dosage: APPLIED TO CATHETER SITE
     Dates: start: 20090901, end: 20090901

REACTIONS (2)
  - APPLICATION SITE BURN [None]
  - BURNS THIRD DEGREE [None]
